FAERS Safety Report 8071575-9 (Version None)
Quarter: 2012Q1

REPORT INFORMATION
  Report Type: 
  Country: None (occurrence: None)
  Receive Date: 20120125
  Receipt Date: 20120119
  Transmission Date: 20120608
  Serious: Yes (Other)
  Sender: FDA-Public Use
  Company Number: DE-PFIZER INC-2012015447

PATIENT
  Age: 39 Year
  Sex: Female
  Weight: 70 kg

DRUGS (2)
  1. LYRICA [Suspect]
     Indication: TRIGEMINAL NEURALGIA
     Dosage: 300 MG DAILY
     Route: 048
     Dates: start: 20111101, end: 20120101
  2. LYRICA [Suspect]
     Dosage: 450 MG DAILY
     Route: 048
     Dates: start: 20120101, end: 20120117

REACTIONS (3)
  - SKIN EXFOLIATION [None]
  - ERYTHEMA [None]
  - FEELING HOT [None]
